FAERS Safety Report 14977473 (Version 1)
Quarter: 2018Q2

REPORT INFORMATION
  Report Type: Spontaneous
  Country: US (occurrence: US)
  Receive Date: 20180606
  Receipt Date: 20180606
  Transmission Date: 20180711
  Serious: Yes (Death, Hospitalization)
  Sender: FDA-Public Use
  Company Number: US-VELOXIS PHARMACEUTICALS, INC.-2018VELUS0977

PATIENT
  Age: 70 Year
  Sex: Male

DRUGS (2)
  1. ENVARSUS XR [Suspect]
     Active Substance: TACROLIMUS
     Indication: RENAL TRANSPLANT
  2. ENVARSUS XR [Suspect]
     Active Substance: TACROLIMUS
     Indication: HEART TRANSPLANT

REACTIONS (10)
  - Bacterial sepsis [Fatal]
  - Delirium [Not Recovered/Not Resolved]
  - Tremor [Unknown]
  - Agitation [Unknown]
  - Gait disturbance [Unknown]
  - Demyelination [Unknown]
  - Asthenia [Unknown]
  - Encephalopathy [Unknown]
  - Pain [Unknown]
  - Intentional product use issue [Unknown]
